FAERS Safety Report 7336389-3 (Version None)
Quarter: 2011Q1

REPORT INFORMATION
  Report Type: 
  Country: None (occurrence: None)
  Receive Date: 20110307
  Receipt Date: 20110302
  Transmission Date: 20110831
  Serious: Yes (Life-Threatening, Hospitalization, Other)
  Sender: FDA-Public Use
  Company Number: US-CEPHALON-2011000654

PATIENT
  Sex: Male

DRUGS (3)
  1. NEULASTA [Concomitant]
  2. TREANDA [Suspect]
     Indication: NON-HODGKIN'S LYMPHOMA
     Route: 041
     Dates: start: 20100831, end: 20110104
  3. RITUXAN [Concomitant]
     Indication: NON-HODGKIN'S LYMPHOMA
     Dates: end: 20110208

REACTIONS (7)
  - HEPATIC FUNCTION ABNORMAL [None]
  - OESOPHAGEAL ULCER [None]
  - OESOPHAGITIS [None]
  - MALNUTRITION [None]
  - T-LYMPHOCYTE COUNT DECREASED [None]
  - COLITIS [None]
  - OPPORTUNISTIC INFECTION [None]
